FAERS Safety Report 9628720 (Version 1)
Quarter: 2013Q4

REPORT INFORMATION
  Report Type: Spontaneous
  Country: ES (occurrence: ES)
  Receive Date: 20131017
  Receipt Date: 20131017
  Transmission Date: 20140711
  Serious: Yes (Other)
  Sender: FDA-Public Use
  Company Number: ES-PERRIGO-13ES010521

PATIENT
  Sex: 0

DRUGS (2)
  1. ACETAMINOPHEN 650MG ER 544 [Suspect]
     Indication: SUICIDE ATTEMPT
     Dosage: UNK
     Route: 065
  2. ACETAMINOPHEN 650MG ER 544 [Suspect]
     Indication: OVERDOSE

REACTIONS (2)
  - Drug-induced liver injury [Unknown]
  - Intentional overdose [Unknown]
